FAERS Safety Report 18241599 (Version 1)
Quarter: 2020Q3

REPORT INFORMATION
  Report Type: Spontaneous
  Country: DE (occurrence: DE)
  Receive Date: 20200908
  Receipt Date: 20200908
  Transmission Date: 20201103
  Serious: Yes (Hospitalization, Other)
  Sender: FDA-Public Use
  Company Number: NVSC2020DE242677

PATIENT
  Sex: Female

DRUGS (50)
  1. RAMIPRIL. [Suspect]
     Active Substance: RAMIPRIL
     Indication: PRODUCT USED FOR UNKNOWN INDICATION
     Dosage: UNK
     Route: 065
     Dates: start: 20160412
  2. PREDNISOLON [Suspect]
     Active Substance: PREDNISOLONE
     Indication: PRODUCT USED FOR UNKNOWN INDICATION
     Dosage: UNK
     Route: 065
     Dates: start: 20160404
  3. CEFUROXIM HEUMANN [Suspect]
     Active Substance: CEFUROXIME AXETIL
     Indication: PRODUCT USED FOR UNKNOWN INDICATION
     Dosage: UNK
     Route: 065
     Dates: start: 20170731
  4. VALSARTAN DURA [Suspect]
     Active Substance: VALSARTAN
     Dosage: 240 MG, QD (1 IN MORNING AND 1/2 IN EVENING)
     Route: 065
     Dates: start: 201709, end: 201811
  5. VALSARTAN DURA [Suspect]
     Active Substance: VALSARTAN
     Dosage: 160 MG, QD (80 MILLIGRAM, BID ((IN THE MORNING AND EVENING))
     Route: 065
  6. SIMVA [Suspect]
     Active Substance: SIMVASTATIN
     Dosage: UNK
     Route: 065
     Dates: start: 20170410, end: 20170619
  7. VALSACOR [Suspect]
     Active Substance: VALSARTAN
     Dosage: UNK (STRENGTH: 80 MG)
     Route: 065
     Dates: start: 20190521
  8. AZITHROMYCIN HEC [Suspect]
     Active Substance: AZITHROMYCIN
     Indication: PRODUCT USED FOR UNKNOWN INDICATION
     Dosage: UNK
     Route: 065
     Dates: start: 20160920
  9. SPIRIVA [Suspect]
     Active Substance: TIOTROPIUM BROMIDE MONOHYDRATE
     Dosage: UNK
     Route: 065
     Dates: start: 20161117
  10. CELESTENE N [Suspect]
     Active Substance: BETAMETHASONE
     Indication: PRODUCT USED FOR UNKNOWN INDICATION
     Dosage: UNK
     Route: 065
     Dates: start: 20171012
  11. VALSARTAN 1A PHARMA [Suspect]
     Active Substance: VALSARTAN
     Indication: HYPERTENSION
     Dosage: UNK
     Route: 065
     Dates: start: 20170816, end: 201709
  12. DICLO 1A PHARMA [Suspect]
     Active Substance: DICLOFENAC SODIUM
     Indication: PRODUCT USED FOR UNKNOWN INDICATION
     Dosage: UNK
     Route: 065
     Dates: start: 20160303
  13. SKID [Suspect]
     Active Substance: MINOCYCLINE HYDROCHLORIDE
     Indication: PRODUCT USED FOR UNKNOWN INDICATION
     Dosage: UNK
     Route: 065
     Dates: start: 20161216
  14. VALSACOR [Suspect]
     Active Substance: VALSARTAN
     Indication: HYPERTENSION
     Dosage: UNK (STRENGTH: 80 MG)
     Route: 065
     Dates: start: 20190304, end: 20190423
  15. TAVOR (LORAZEPAM) [Suspect]
     Active Substance: LORAZEPAM
     Indication: PRODUCT USED FOR UNKNOWN INDICATION
     Dosage: UNK
     Route: 065
     Dates: start: 20180713
  16. MINOCYCLIN RATIOPHARM [Suspect]
     Active Substance: MINOCYCLINE HYDROCHLORIDE
     Indication: PRODUCT USED FOR UNKNOWN INDICATION
     Dosage: UNK
     Route: 065
     Dates: start: 20170814
  17. JEXT [Suspect]
     Active Substance: EPINEPHRINE BITARTRATE
     Indication: PRODUCT USED FOR UNKNOWN INDICATION
     Dosage: UNK
     Route: 065
     Dates: start: 20171012
  18. AMLODIPIN DEXCEL [AMLODIPINE MALEATE] [Suspect]
     Active Substance: AMLODIPINE MALEATE
     Dosage: UNK
     Route: 065
     Dates: start: 20171115
  19. BERODUAL N [Suspect]
     Active Substance: FENOTEROL HYDROBROMIDE\IPRATROPIUM BROMIDE
     Indication: PRODUCT USED FOR UNKNOWN INDICATION
     Dosage: UNK
     Route: 065
     Dates: start: 20160317, end: 20160920
  20. L?THYROX HEXAL [Suspect]
     Active Substance: LEVOTHYROXINE SODIUM
     Indication: PRODUCT USED FOR UNKNOWN INDICATION
     Dosage: UNK
     Route: 065
     Dates: start: 20170109, end: 20170410
  21. L?THYROX HEXAL [Suspect]
     Active Substance: LEVOTHYROXINE SODIUM
     Dosage: UNK
     Route: 065
     Dates: start: 20170619, end: 20171115
  22. VALSARTAN DURA [Suspect]
     Active Substance: VALSARTAN
     Indication: HYPERTENSION
     Dosage: 160 MG, QD
     Route: 065
     Dates: start: 201610, end: 201706
  23. L?THYROXIN?HENNING [Suspect]
     Active Substance: LEVOTHYROXINE SODIUM
     Indication: PRODUCT USED FOR UNKNOWN INDICATION
     Dosage: UNK
     Route: 065
     Dates: start: 20160201
  24. METOPROLOL RATIOPHARM [Suspect]
     Active Substance: METOPROLOL
     Dosage: UNK
     Route: 065
     Dates: start: 20171115, end: 20180305
  25. METOPROLOL RATIOPHARM [Suspect]
     Active Substance: METOPROLOL
     Dosage: UNK
     Route: 065
     Dates: start: 20180608
  26. SPIRIVA [Suspect]
     Active Substance: TIOTROPIUM BROMIDE MONOHYDRATE
     Dosage: UNK
     Route: 065
     Dates: start: 20161216, end: 20170410
  27. VALSARTAN. [Suspect]
     Active Substance: VALSARTAN
     Indication: HYPERTENSION
     Dosage: UNK
     Route: 065
     Dates: start: 20181213, end: 201903
  28. L?THYROX HEXAL [Suspect]
     Active Substance: LEVOTHYROXINE SODIUM
     Dosage: UNK
     Route: 065
     Dates: start: 20180305, end: 20180608
  29. SIMVA [Suspect]
     Active Substance: SIMVASTATIN
     Dosage: UNK
     Route: 065
     Dates: start: 20161010, end: 20170109
  30. SPIRIVA [Suspect]
     Active Substance: TIOTROPIUM BROMIDE MONOHYDRATE
     Dosage: UNK
     Route: 065
     Dates: start: 20180608
  31. DICLOFENAC RATIOPHARM [Suspect]
     Active Substance: DICLOFENAC
     Indication: PRODUCT USED FOR UNKNOWN INDICATION
     Dosage: UNK
     Route: 065
     Dates: start: 20171115, end: 20180608
  32. L?THYROXIN ARISTO [Suspect]
     Active Substance: LEVOTHYROXINE SODIUM
     Indication: PRODUCT USED FOR UNKNOWN INDICATION
     Dosage: UNK
     Route: 065
     Dates: start: 20160412
  33. L?THYROXIN ARISTO [Suspect]
     Active Substance: LEVOTHYROXINE SODIUM
     Dosage: UNK
     Route: 065
     Dates: start: 20161010
  34. METOPROLOL RATIOPHARM [Suspect]
     Active Substance: METOPROLOL
     Dosage: UNK
     Route: 065
     Dates: start: 20170515, end: 20170619
  35. VALSARTAN DURA [Suspect]
     Active Substance: VALSARTAN
     Dosage: 240 MILLIGRAM, PM (NOT REPORTED THE EVENING TOTAL 240 MG DAILY)
     Route: 065
     Dates: start: 201906, end: 201907
  36. CEFUROX [Suspect]
     Active Substance: CEFUROXIME AXETIL
     Indication: PRODUCT USED FOR UNKNOWN INDICATION
     Dosage: UNK
     Route: 065
     Dates: start: 20160927, end: 20171005
  37. SPIRIVA [Suspect]
     Active Substance: TIOTROPIUM BROMIDE MONOHYDRATE
     Indication: PRODUCT USED FOR UNKNOWN INDICATION
     Dosage: UNK
     Route: 065
     Dates: start: 20161010, end: 20170210
  38. SPIRIVA [Suspect]
     Active Substance: TIOTROPIUM BROMIDE MONOHYDRATE
     Dosage: UNK
     Route: 065
     Dates: start: 20170619, end: 20170914
  39. PANTOPRAZOL HEUMANN [Suspect]
     Active Substance: PANTOPRAZOLE SODIUM
     Indication: PRODUCT USED FOR UNKNOWN INDICATION
     Dosage: UNK
     Route: 065
     Dates: start: 20161216
  40. METOPROLOL ABZ [Suspect]
     Active Substance: METOPROLOL TARTRATE
     Indication: PRODUCT USED FOR UNKNOWN INDICATION
     Dosage: UNK
     Route: 065
     Dates: start: 20160419
  41. METOPROLOL RATIOPHARM [Suspect]
     Active Substance: METOPROLOL
     Indication: PRODUCT USED FOR UNKNOWN INDICATION
     Dosage: UNK
     Route: 065
     Dates: start: 20161010, end: 20161117
  42. METOPROLOL RATIOPHARM [Suspect]
     Active Substance: METOPROLOL
     Dosage: UNK
     Route: 065
     Dates: start: 20170109, end: 20170323
  43. FOSFOMYCIN EBERTH [Suspect]
     Active Substance: FOSFOMYCIN TROMETHAMINE
     Indication: PRODUCT USED FOR UNKNOWN INDICATION
     Dosage: UNK
     Route: 065
     Dates: start: 20170819
  44. AMLODIPIN DEXCEL [AMLODIPINE MALEATE] [Suspect]
     Active Substance: AMLODIPINE MALEATE
     Indication: PRODUCT USED FOR UNKNOWN INDICATION
     Dosage: UNK
     Route: 065
     Dates: start: 20161024, end: 20170109
  45. AMLODIPIN DEXCEL [AMLODIPINE MALEATE] [Suspect]
     Active Substance: AMLODIPINE MALEATE
     Dosage: UNK
     Route: 065
     Dates: start: 20170410, end: 20170619
  46. SIMVA [Suspect]
     Active Substance: SIMVASTATIN
     Indication: PRODUCT USED FOR UNKNOWN INDICATION
     Dosage: UNK
     Route: 065
     Dates: start: 20160512
  47. VALSACOR [Suspect]
     Active Substance: VALSARTAN
     Dosage: UNK (STRENGTH: 160 MG)
     Route: 065
     Dates: start: 20190716, end: 20191017
  48. CLARILIND [Suspect]
     Active Substance: CLARITHROMYCIN
     Indication: PRODUCT USED FOR UNKNOWN INDICATION
     Dosage: UNK
     Route: 065
     Dates: start: 20160310
  49. SPIRIVA [Suspect]
     Active Substance: TIOTROPIUM BROMIDE MONOHYDRATE
     Dosage: UNK
     Route: 065
     Dates: start: 20171214, end: 20180305
  50. METOPROLOL RATIOPHARM [Suspect]
     Active Substance: METOPROLOL
     Dosage: UNK
     Route: 065
     Dates: start: 20170814, end: 20171005

REACTIONS (12)
  - Mental impairment [Not Recovered/Not Resolved]
  - Fear of disease [Unknown]
  - Dyspnoea [Unknown]
  - Hypertension [Unknown]
  - Dizziness [Unknown]
  - Sense of oppression [Unknown]
  - Panic attack [Unknown]
  - Anxiety [Unknown]
  - Nausea [Unknown]
  - Fatigue [Unknown]
  - Depression [Not Recovered/Not Resolved]
  - Hyperhidrosis [Unknown]
